FAERS Safety Report 19591303 (Version 1)
Quarter: 2021Q3

REPORT INFORMATION
  Report Type: Spontaneous
  Country: US (occurrence: US)
  Receive Date: 20210721
  Receipt Date: 20210721
  Transmission Date: 20211014
  Serious: Yes (Hospitalization, Other)
  Sender: FDA-Public Use
  Company Number: US-ELI_LILLY_AND_COMPANY-US202107005868

PATIENT
  Age: 78 Year
  Sex: Male
  Weight: 86.17 kg

DRUGS (5)
  1. HUMULIN R U?500 [Suspect]
     Active Substance: INSULIN HUMAN
     Dosage: 165 U, DAILY
     Route: 065
     Dates: start: 202101
  2. HUMULIN R U?500 [Suspect]
     Active Substance: INSULIN HUMAN
     Indication: TYPE 2 DIABETES MELLITUS
     Dosage: 150 U, DAILY
     Route: 065
     Dates: start: 202101
  3. NOVOLOG [Concomitant]
     Active Substance: INSULIN ASPART
     Indication: DIABETES MELLITUS
     Dosage: 20 U, UNKNOWN
     Route: 065
  4. OZEMPIC [Concomitant]
     Active Substance: SEMAGLUTIDE
     Indication: PRODUCT USED FOR UNKNOWN INDICATION
  5. METFORMIN [Concomitant]
     Active Substance: METFORMIN HYDROCHLORIDE
     Indication: PRODUCT USED FOR UNKNOWN INDICATION

REACTIONS (10)
  - Wound complication [Unknown]
  - Localised infection [Unknown]
  - Hypoaesthesia [Unknown]
  - Blood glucose increased [Unknown]
  - Angiopathy [Unknown]
  - Dry mouth [Unknown]
  - Headache [Unknown]
  - Blood glucose decreased [Unknown]
  - Limb injury [Unknown]
  - Cellulitis [Unknown]

NARRATIVE: CASE EVENT DATE: 20210708
